FAERS Safety Report 9799006 (Version 1)
Quarter: 2014Q1

REPORT INFORMATION
  Report Type: Spontaneous
  Country: US (occurrence: US)
  Receive Date: 20140106
  Receipt Date: 20140106
  Transmission Date: 20141002
  Serious: No
  Sender: FDA-Public Use
  Company Number: US-GILEAD-2010-0032351

PATIENT
  Age: 63 Year
  Sex: Female
  Weight: 56.7 kg

DRUGS (11)
  1. LETAIRIS [Suspect]
     Indication: PULMONARY ARTERIAL HYPERTENSION
     Route: 048
     Dates: start: 20090427
  2. REMODULIN [Concomitant]
  3. WARFARIN [Concomitant]
  4. LASIX [Concomitant]
  5. LOTEMAX [Concomitant]
  6. FOSAMAX [Concomitant]
  7. BESIVANCE SUSP [Concomitant]
  8. VITAMIN D [Concomitant]
  9. CALCIUM [Concomitant]
  10. VITAMIN B-100 [Concomitant]
  11. MAGNESIUM [Concomitant]

REACTIONS (1)
  - Nasal congestion [Unknown]
